FAERS Safety Report 21740334 (Version 1)
Quarter: 2022Q4

REPORT INFORMATION
  Report Type: Other
  Country: US (occurrence: None)
  Receive Date: 20221216
  Receipt Date: 20221216
  Transmission Date: 20230112
  Serious: Yes (Other)
  Sender: FDA-Public Use
  Company Number: US-ROCHE-3242090

PATIENT
  Age: 56 Year
  Sex: Female

DRUGS (1)
  1. XELODA [Suspect]
     Active Substance: CAPECITABINE
     Indication: Breast cancer metastatic
     Dosage: TAKE 3 TABLET(S) BY MOUTH (1500 MG) TWICE A DAY ON DAYS 1-14 EVERY 21 DAY(S)
     Route: 048

REACTIONS (1)
  - Metastases to central nervous system [Unknown]
